FAERS Safety Report 5650027-7 (Version None)
Quarter: 2008Q1

REPORT INFORMATION
  Report Type: 
  Country: None (occurrence: None)
  Receive Date: 20080303
  Receipt Date: 20080222
  Transmission Date: 20080703
  Serious: Yes (Death)
  Sender: FDA-Public Use
  Company Number: L08-USA-00315-57

PATIENT
  Age: 50 Year
  Sex: Female

DRUGS (1)
  1. DILTIAZEM [Suspect]

REACTIONS (5)
  - ALCOHOL USE [None]
  - CARDIAC ARREST [None]
  - COMPLETED SUICIDE [None]
  - MULTIPLE DRUG OVERDOSE [None]
  - RESPIRATORY ARREST [None]
